FAERS Safety Report 6174477-8 (Version None)
Quarter: 2009Q2

REPORT INFORMATION
  Report Type: 
  Country: None (occurrence: None)
  Receive Date: 20090430
  Receipt Date: 20080619
  Transmission Date: 20091009
  Serious: Yes (Hospitalization)
  Sender: FDA-Public Use
  Company Number: US-ASTRAZENECA-2008UW12404

PATIENT
  Age: 69 Year
  Sex: Male
  Weight: 72.6 kg

DRUGS (13)
  1. NEXIUM [Suspect]
     Indication: HIATUS HERNIA
     Route: 048
  2. NEXIUM [Suspect]
     Indication: GASTROOESOPHAGEAL REFLUX DISEASE
     Route: 048
  3. THEO-24 [Concomitant]
  4. LANTUS [Concomitant]
  5. VYTORIN [Concomitant]
  6. HYZAAR [Concomitant]
     Dosage: 50/25
  7. SINGULAIR [Concomitant]
  8. CARDIZEM [Concomitant]
  9. PEPCID [Concomitant]
  10. METHAPRED [Concomitant]
  11. ALBUTEROL [Concomitant]
     Route: 055
  12. ASPIRIN [Concomitant]
  13. PROAIR HFA [Concomitant]
     Dosage: 2 PUFFS, BID

REACTIONS (2)
  - GASTROINTESTINAL HAEMORRHAGE [None]
  - POLYP [None]
